FAERS Safety Report 8710522 (Version 2)
Quarter: 2012Q4

REPORT INFORMATION
  Report Type: 
  Country: US (occurrence: US)
  Receive Date: 20120807
  Receipt Date: 20121010
  Transmission Date: 20130627
  Serious: Yes (Hospitalization)
  Sender: FDA-Public Use
  Company Number: US-BAYER-2012-078988

PATIENT
  Age: 36 Year
  Sex: Female
  Weight: 62.59 kg

DRUGS (1)
  1. MIRENA [Suspect]
     Indication: CONTRACEPTION
     Dosage: 20 mcg/24hr, CONT
     Route: 015
     Dates: start: 20101220

REACTIONS (3)
  - Erythema infectiosum [None]
  - Urticaria [None]
  - Amenorrhoea [None]
